FAERS Safety Report 4385109-3 (Version None)
Quarter: 2004Q2

REPORT INFORMATION
  Report Type: 
  Country: None (occurrence: None)
  Receive Date: 20040615
  Receipt Date: 20040602
  Transmission Date: 20050107
  Serious: Yes (Hospitalization)
  Sender: FDA-Public Use
  Company Number: 2004-02029

PATIENT
  Age: 57 Year
  Sex: Male

DRUGS (2)
  1. IMMUCYST (BCG - IT (CONNAUGHT) ), AVENTIS PASTEUR LTD. , LOT NOT REP, [Suspect]
     Indication: URETERIC CANCER
     Dosage: FROM 14 TO 18 AND FROM 22 TO 23 APR 04
     Dates: start: 20040414, end: 20040423
  2. LEVOFLOXACIN [Concomitant]

REACTIONS (4)
  - ARTHRITIS [None]
  - LIVER DISORDER [None]
  - PYREXIA [None]
  - TUBERCULOSIS [None]
